FAERS Safety Report 12991587 (Version 1)
Quarter: 2016Q4

REPORT INFORMATION
  Report Type: Spontaneous
  Country: GB (occurrence: GB)
  Receive Date: 20161201
  Receipt Date: 20161201
  Transmission Date: 20170207
  Serious: Yes (Life-Threatening, Hospitalization, Other)
  Sender: FDA-Public Use
  Company Number: GB-PFIZER INC-2016555995

PATIENT
  Age: 78 Year
  Sex: Male

DRUGS (1)
  1. CELECOXIB. [Suspect]
     Active Substance: CELECOXIB
     Dosage: UNK
     Route: 048

REACTIONS (5)
  - Chest pain [Unknown]
  - Acute coronary syndrome [Recovering/Resolving]
  - Musculoskeletal pain [Unknown]
  - Pain in jaw [Unknown]
  - Nausea [Unknown]
